FAERS Safety Report 8691747 (Version 2)
Quarter: 2012Q4

REPORT INFORMATION
  Report Type: 
  Country: US (occurrence: US)
  Receive Date: 20120730
  Receipt Date: 20120927
  Transmission Date: 20130627
  Serious: Yes (Other)
  Sender: FDA-Public Use
  Company Number: US-PFIZER INC-2012181870

PATIENT
  Age: 53 Year
  Sex: Male
  Weight: 98.87 kg

DRUGS (7)
  1. CHANTIX [Suspect]
     Indication: SMOKING CESSATION THERAPY
     Dosage: 0.5 mg, 1x/day
     Route: 048
     Dates: start: 20120514, end: 2012
  2. CHANTIX [Suspect]
     Dosage: 1 mg, 2x/day
     Route: 048
     Dates: start: 2012, end: 20120724
  3. CHANTIX [Suspect]
     Dosage: UNK
     Route: 048
     Dates: start: 2012
  4. LISINOPRIL [Concomitant]
     Indication: HYPERTENSION
     Dosage: 20 mg, QD
     Route: 048
     Dates: start: 20120110
  5. METFORMIN [Concomitant]
     Indication: DIABETES MELLITUS
     Dosage: 500 mg, QD
     Route: 048
     Dates: start: 20120626
  6. METFORMIN [Concomitant]
     Indication: TYPE 2 DIABETES MELLITUS
  7. ASA [Concomitant]
     Dosage: 81 mg, UNK
     Route: 048
     Dates: start: 201201

REACTIONS (8)
  - Cerebrovascular accident [Unknown]
  - Movement disorder [Unknown]
  - Muscular weakness [Unknown]
  - Sensation of heaviness [Unknown]
  - Limb discomfort [Unknown]
  - Hypoaesthesia [Unknown]
  - Asthenia [Unknown]
  - Dysarthria [Unknown]
